FAERS Safety Report 8508779-4 (Version None)
Quarter: 2012Q3

REPORT INFORMATION
  Report Type: 
  Country: None (occurrence: None)
  Receive Date: 20120713
  Receipt Date: 20120710
  Transmission Date: 20120928
  Serious: No
  Sender: FDA-Public Use
  Company Number: US-B.I. PHARMACEUTICALS,INC./RIDGEFIELD-2012-BP-15408BP

PATIENT
  Sex: Male

DRUGS (13)
  1. TRADJENTA [Suspect]
     Indication: TYPE 2 DIABETES MELLITUS
     Dosage: 5 MG
     Route: 048
     Dates: start: 20120611
  2. GABAPENTIN [Concomitant]
     Route: 048
  3. NORTRIPTYLINE HCL [Concomitant]
     Dosage: 10 MG
     Route: 048
  4. PROPRANOLOL [Concomitant]
     Dosage: 20 MG
     Route: 048
  5. METFORMIN HYDROCHLORIDE [Concomitant]
     Dosage: 1000 MG
     Route: 048
  6. OXYCONTIN [Concomitant]
     Indication: PAIN
     Route: 048
  7. VITAMIN B-12 [Concomitant]
  8. LOVASTATIN [Concomitant]
     Dosage: 20 MG
     Route: 048
  9. ALEVE [Concomitant]
     Route: 048
  10. GLYBURIDE [Concomitant]
     Dosage: 16 MG
     Route: 048
  11. MAGNESIUM OXIDE [Concomitant]
     Route: 048
  12. MORPHINE SULFATE [Concomitant]
     Dosage: 15 MG
     Route: 048
  13. LISINOPRIL [Concomitant]
     Dosage: 5 MG
     Route: 048

REACTIONS (1)
  - BLOOD GLUCOSE ABNORMAL [None]
